FAERS Safety Report 5957879-1 (Version None)
Quarter: 2008Q4

REPORT INFORMATION
  Report Type: 
  Country: None (occurrence: None)
  Receive Date: 20081107
  Receipt Date: 20081029
  Transmission Date: 20090506
  Serious: Yes (Hospitalization)
  Sender: FDA-Public Use
  Company Number: 2008BI018470

PATIENT
  Age: 67 Year
  Sex: Female
  Weight: 107.0489 kg

DRUGS (2)
  1. AVONEX [Suspect]
     Indication: MULTIPLE SCLEROSIS
     Dosage: 30 UG;QW; IM
     Route: 030
     Dates: start: 20010823, end: 20081001
  2. AVONEX [Suspect]
     Indication: MULTIPLE SCLEROSIS
     Dosage: 30 UG;QW; IM
     Route: 030
     Dates: start: 20081001

REACTIONS (4)
  - CEREBRAL CYST [None]
  - INCISION SITE INFECTION [None]
  - INTRACRANIAL HYPOTENSION [None]
  - MUSCULAR WEAKNESS [None]
